FAERS Safety Report 7334568-2 (Version None)
Quarter: 2011Q1

REPORT INFORMATION
  Report Type: 
  Country: None (occurrence: None)
  Receive Date: 20110307
  Receipt Date: 20100805
  Transmission Date: 20110831
  Serious: No
  Sender: FDA-Public Use
  Company Number: A0874216A

PATIENT
  Sex: Male

DRUGS (5)
  1. IMITREX [Concomitant]
  2. UNSPECIFIED DRUG [Concomitant]
  3. UNSPECIFIED DRUG [Concomitant]
  4. UNSPECIFIED DRUG [Concomitant]
  5. REQUIP [Suspect]
     Indication: RESTLESS LEGS SYNDROME
     Dosage: 1TAB FOUR TIMES PER DAY
     Route: 048
     Dates: start: 20090101

REACTIONS (1)
  - GAIT DISTURBANCE [None]
